FAERS Safety Report 23448665 (Version 1)
Quarter: 2024Q1

REPORT INFORMATION
  Report Type: Spontaneous
  Country: US (occurrence: US)
  Receive Date: 20240127
  Receipt Date: 20240127
  Transmission Date: 20240409
  Serious: Yes (Other)
  Sender: FDA-Public Use
  Company Number: US-ELI_LILLY_AND_COMPANY-US202401009527

PATIENT
  Age: 56 Year
  Sex: Female

DRUGS (1)
  1. RETEVMO [Suspect]
     Active Substance: SELPERCATINIB
     Indication: Medullary thyroid cancer
     Dosage: UNK, UNKNOWN
     Route: 065

REACTIONS (8)
  - Hepatitis acute [Recovered/Resolved]
  - Drug-induced liver injury [Recovered/Resolved]
  - Chronic hepatitis [Recovered/Resolved]
  - Glossodynia [Unknown]
  - Muscle spasms [Unknown]
  - Splenomegaly [Recovered/Resolved]
  - Stomatitis [Unknown]
  - Ascites [Recovered/Resolved]
